FAERS Safety Report 9837817 (Version 1)
Quarter: 2014Q1

REPORT INFORMATION
  Report Type: Spontaneous
  Country: US (occurrence: US)
  Receive Date: 20140123
  Receipt Date: 20140123
  Transmission Date: 20141002
  Serious: No
  Sender: FDA-Public Use
  Company Number: US-009507513-1401USA005629

PATIENT
  Age: 33 Year
  Sex: Female

DRUGS (3)
  1. CLARITIN-D-24 [Suspect]
     Indication: NASOPHARYNGITIS
     Dosage: UNK, UNKNOWN
     Route: 048
  2. CLARITIN-D-24 [Suspect]
     Indication: SINUS HEADACHE
  3. CLARITIN-D-24 [Suspect]
     Indication: LACRIMATION INCREASED

REACTIONS (3)
  - Poor quality sleep [Unknown]
  - Feeling jittery [Unknown]
  - Therapeutic response delayed [Unknown]
